FAERS Safety Report 18995470 (Version 2)
Quarter: 2021Q2

REPORT INFORMATION
  Report Type: Spontaneous
  Country: US (occurrence: US)
  Receive Date: 20210311
  Receipt Date: 20210624
  Transmission Date: 20210717
  Serious: No
  Sender: FDA-Public Use
  Company Number: US-DECIPHERA PHARMACEUTICALS LLC-2020-US-000676

PATIENT
  Age: 62 Year
  Sex: Male

DRUGS (3)
  1. QINLOCK [Suspect]
     Active Substance: RIPRETINIB
     Indication: GASTROINTESTINAL STROMAL TUMOUR
     Dosage: 150 MILLIGRAM, QD
     Route: 048
     Dates: start: 20201028
  2. QINLOCK [Suspect]
     Active Substance: RIPRETINIB
     Dosage: 100 MILLIGRAM, QD
     Route: 048
  3. QINLOCK [Suspect]
     Active Substance: RIPRETINIB
     Dosage: 150 MILLIGRAM, QD
     Route: 048
     Dates: start: 20210112, end: 20210310

REACTIONS (11)
  - Adverse drug reaction [Unknown]
  - Musculoskeletal discomfort [Unknown]
  - Tenderness [Unknown]
  - Myalgia [Unknown]
  - Therapy cessation [Unknown]
  - Limb discomfort [Unknown]
  - Neoplasm progression [Unknown]
  - Nausea [Unknown]
  - Pain [Unknown]
  - Hypoaesthesia [Unknown]
  - Feeling cold [Unknown]

NARRATIVE: CASE EVENT DATE: 202101
